FAERS Safety Report 17029482 (Version 3)
Quarter: 2020Q2

REPORT INFORMATION
  Report Type: Report from Study
  Country: KR (occurrence: KR)
  Receive Date: 20191114
  Receipt Date: 20200610
  Transmission Date: 20200713
  Serious: Yes (Hospitalization)
  Sender: FDA-Public Use
  Company Number: KR-SA-2019SA312563

PATIENT

DRUGS (8)
  1. AUGMENTIN [Concomitant]
     Active Substance: AMOXICILLIN\CLAVULANATE POTASSIUM
     Indication: PYREXIA
     Dosage: 625 MG, Q8H
     Route: 048
     Dates: start: 20191101, end: 20191105
  2. XYZAL [Concomitant]
     Active Substance: LEVOCETIRIZINE DIHYDROCHLORIDE
     Indication: RASH
     Dosage: 5 MG, QD
     Route: 048
     Dates: start: 20191031
  3. DOCETAXEL. [Suspect]
     Active Substance: DOCETAXEL
     Indication: BREAST CANCER
     Dosage: 75 MG/M2, Q3W
     Route: 042
     Dates: start: 20191024, end: 20191024
  4. GRASIN [Concomitant]
     Indication: FEBRILE NEUTROPENIA
     Dosage: 300 UG, QD
     Route: 058
     Dates: start: 20191031, end: 20191031
  5. ATEZOLIZUMAB. [Suspect]
     Active Substance: ATEZOLIZUMAB
     Indication: BREAST CANCER
     Dosage: 1200 MG, Q3W
     Route: 042
     Dates: start: 20191024, end: 20191024
  6. CIPROBAY [CIPROFLOXACIN] [Concomitant]
     Indication: PYREXIA
     Dosage: 250 MG, Q12H
     Route: 048
     Dates: start: 20191031, end: 20191101
  7. TRIDOL [Concomitant]
     Active Substance: TRAMADOL HYDROCHLORIDE
     Indication: PYREXIA
     Dosage: 50 MG, QD
     Route: 042
     Dates: start: 20191101, end: 20191101
  8. ALLEGRA [Concomitant]
     Active Substance: FEXOFENADINE HYDROCHLORIDE
     Indication: RASH
     Dosage: 120 MG, Q8H
     Route: 048
     Dates: start: 20191031

REACTIONS (2)
  - Pyrexia [Recovered/Resolved]
  - Pharyngeal swelling [Recovered/Resolved]

NARRATIVE: CASE EVENT DATE: 20191030
